FAERS Safety Report 5800083-8 (Version None)
Quarter: 2008Q2

REPORT INFORMATION
  Report Type: 
  Country: None (occurrence: None)
  Receive Date: 20080626
  Receipt Date: 20070507
  Transmission Date: 20081010
  Serious: Yes (Death)
  Sender: FDA-Public Use
  Company Number: 496372

PATIENT
  Sex: Female

DRUGS (3)
  1. XELODA [Suspect]
     Indication: COLORECTAL CANCER
  2. AVASTIN [Suspect]
     Indication: COLORECTAL CANCER
  3. ELOXATIN [Suspect]
     Indication: COLORECTAL CANCER
     Dosage: INTRAVENOUS
     Route: 042

REACTIONS (1)
  - DISEASE PROGRESSION [None]
